FAERS Safety Report 14348043 (Version 2)
Quarter: 2018Q1

REPORT INFORMATION
  Report Type: Spontaneous
  Country: US (occurrence: US)
  Receive Date: 20180103
  Receipt Date: 20180220
  Transmission Date: 20180509
  Serious: Yes (Other)
  Sender: FDA-Public Use
  Company Number: US-INCYTE CORPORATION-2017IN011126

PATIENT

DRUGS (1)
  1. JAKAFI [Suspect]
     Active Substance: RUXOLITINIB
     Indication: MYELOFIBROSIS
     Dosage: 10 MG, BID
     Route: 048
     Dates: start: 20140527

REACTIONS (3)
  - Squamous cell carcinoma [Not Recovered/Not Resolved]
  - Basal cell carcinoma [Not Recovered/Not Resolved]
  - Skin cancer [Not Recovered/Not Resolved]

NARRATIVE: CASE EVENT DATE: 201409
